FAERS Safety Report 6460831-3 (Version None)
Quarter: 2009Q4

REPORT INFORMATION
  Report Type: 
  Country: None (occurrence: None)
  Receive Date: 20091130
  Receipt Date: 20091123
  Transmission Date: 20100525
  Serious: Yes (Death)
  Sender: FDA-Public Use
  Company Number: VN-ASTRAZENECA-2009SE28012

PATIENT
  Age: 52 Year
  Sex: Male

DRUGS (3)
  1. MERONEM [Suspect]
     Indication: MENINGITIS BACTERIAL
     Route: 042
  2. CEPHALOSPORIN [Concomitant]
     Indication: MENINGITIS BACTERIAL
  3. QUINOLON [Concomitant]
     Indication: MENINGITIS BACTERIAL

REACTIONS (1)
  - RENAL FAILURE [None]
